FAERS Safety Report 16083928 (Version 4)
Quarter: 2019Q2

REPORT INFORMATION
  Report Type: Report from Study
  Country: US (occurrence: US)
  Receive Date: 20190318
  Receipt Date: 20190524
  Transmission Date: 20190711
  Serious: Yes (Other)
  Sender: FDA-Public Use
  Company Number: US-PFIZER INC-2019074218

PATIENT
  Age: 66 Year
  Sex: Female

DRUGS (3)
  1. IBRANCE [Suspect]
     Active Substance: PALBOCICLIB
     Indication: BREAST CANCER FEMALE
     Dosage: 125 MG, CYCLIC (DAILY, FOR 21 DAYS ON AND 7 DAYS OFF)
     Route: 048
     Dates: start: 20190126, end: 20190227
  2. FASLODEX [Suspect]
     Active Substance: FULVESTRANT
     Dosage: UNK
     Route: 030
  3. IBRANCE [Suspect]
     Active Substance: PALBOCICLIB
     Dosage: 100 MG, CYCLIC [21 DAYS ON AND 7 DAYS OFF]
     Route: 048
     Dates: start: 20190429

REACTIONS (6)
  - Pain [Unknown]
  - Bone marrow failure [Recovered/Resolved]
  - Spinal compression fracture [Recovering/Resolving]
  - Aphonia [Recovering/Resolving]
  - Nausea [Recovering/Resolving]
  - Decreased appetite [Recovering/Resolving]

NARRATIVE: CASE EVENT DATE: 2019
